FAERS Safety Report 21371393 (Version 2)
Quarter: 2022Q4

REPORT INFORMATION
  Report Type: Spontaneous
  Country: US (occurrence: None)
  Receive Date: 20220923
  Receipt Date: 20221025
  Transmission Date: 20230113
  Serious: No
  Sender: FDA-Public Use
  Company Number: 2022A297528

PATIENT
  Age: 852 Month
  Sex: Female

DRUGS (1)
  1. BUDESONIDE\FORMOTEROL\GLYCOPYRRONIUM [Suspect]
     Active Substance: BUDESONIDE\FORMOTEROL\GLYCOPYRRONIUM
     Indication: Bronchiectasis
     Dosage: 160/9/4.8 MCG, 120 ACTUATION INHALER,TWO PUFFS TWO TIMES A DAY
     Route: 055
     Dates: start: 20220331

REACTIONS (8)
  - Oropharyngeal pain [Recovered/Resolved]
  - Product dose omission issue [Unknown]
  - Drug ineffective [Recovered/Resolved]
  - Device use issue [Unknown]
  - Intentional product misuse [Unknown]
  - Device defective [Unknown]
  - Device delivery system issue [Unknown]
  - Product packaging quantity issue [Unknown]

NARRATIVE: CASE EVENT DATE: 20220401
